FAERS Safety Report 11124611 (Version 1)
Quarter: 2015Q2

REPORT INFORMATION
  Report Type: Spontaneous
  Country: US (occurrence: None)
  Receive Date: 20150519
  Receipt Date: 20150519
  Transmission Date: 20150821
  Serious: Yes (Other)
  Sender: FDA-Public Use
  Company Number: None

PATIENT
  Age: 62 Year
  Sex: Female
  Weight: 76.2 kg

DRUGS (8)
  1. JANUVIA [Concomitant]
     Active Substance: SITAGLIPTIN PHOSPHATE
  2. METFORMIN [Concomitant]
     Active Substance: METFORMIN HYDROCHLORIDE
  3. INVOKANA [Suspect]
     Active Substance: CANAGLIFLOZIN
     Indication: DIABETES MELLITUS
     Dosage: LESS THAN ONE YEAR
  4. S-ADENOSYLMETHIONINE SULFATE P-TOLUENESULFONATE [Concomitant]
     Active Substance: ADEMETIONINE SULFATE TOSILATE
  5. KELP [Concomitant]
     Active Substance: KELP
  6. MULTIVITAMINS [Concomitant]
     Active Substance: VITAMINS
  7. LITHIUM OROTATE [Concomitant]
     Active Substance: LITHIUM OROTATE
  8. ENALAPRIL [Concomitant]
     Active Substance: ENALAPRIL

REACTIONS (4)
  - Dehydration [None]
  - Antipsychotic drug level below therapeutic [None]
  - Restlessness [None]
  - Initial insomnia [None]

NARRATIVE: CASE EVENT DATE: 20141113
